FAERS Safety Report 24915479 (Version 1)
Quarter: 2025Q1

REPORT INFORMATION
  Report Type: Report from Study
  Country: FR (occurrence: FR)
  Receive Date: 20250203
  Receipt Date: 20250203
  Transmission Date: 20250409
  Serious: Yes (Death, Hospitalization)
  Sender: MUNDIPHARMA EDO
  Company Number: FR-NAPPMUNDI-GBR-2024-0116917

PATIENT
  Age: 29 Year
  Sex: Female
  Weight: 32 kg

DRUGS (11)
  1. REZAFUNGIN ACETATE [Suspect]
     Active Substance: REZAFUNGIN ACETATE
     Indication: Bronchopulmonary aspergillosis
     Dates: start: 20231117, end: 20240513
  2. PREDNISONE [Concomitant]
     Active Substance: PREDNISONE
     Indication: Product used for unknown indication
     Route: 065
  3. ANIFROLUMAB [Concomitant]
     Active Substance: ANIFROLUMAB
     Indication: Interferonopathy
     Dates: start: 20240125, end: 20240510
  4. RAMIPRIL [Concomitant]
     Active Substance: RAMIPRIL
     Indication: Product used for unknown indication
     Route: 065
  5. POSACONAZOLE [Concomitant]
     Active Substance: POSACONAZOLE
     Indication: Aspergilloma
     Dosage: 200 MILLIGRAM, Q12H
     Route: 048
     Dates: start: 20230908, end: 20240523
  6. MIRTAZAPINE [Concomitant]
     Active Substance: MIRTAZAPINE
     Indication: Depression
     Dosage: 15 MILLIGRAM, Q24H
     Route: 048
     Dates: start: 202310
  7. CANDESARTAN [Concomitant]
     Active Substance: CANDESARTAN
     Indication: Proteinuria
     Dosage: 4 MILLIGRAM, Q24H
     Route: 048
     Dates: start: 20240419
  8. OXAZEPAM [Concomitant]
     Active Substance: OXAZEPAM
     Indication: Insomnia
     Dosage: 10 MILLIGRAM, Q24H
     Route: 048
     Dates: start: 202403
  9. TRAMADOL [Concomitant]
     Active Substance: TRAMADOL
     Indication: Pain
     Dosage: 50 MILLIGRAM, Q12H
     Route: 048
     Dates: start: 2023
  10. TRAMADOL [Concomitant]
     Active Substance: TRAMADOL
     Indication: Cough
  11. CLAIRYG [Concomitant]
     Active Substance: HUMAN IMMUNOGLOBULIN G
     Indication: Respiratory tract infection
     Dosage: 15 GRAM, MONTHLY
     Dates: start: 20231214

REACTIONS (2)
  - Respiratory distress [Fatal]
  - Pneumonia [Recovering/Resolving]

NARRATIVE: CASE EVENT DATE: 20240519
